FAERS Safety Report 8026173-X (Version None)
Quarter: 2012Q1

REPORT INFORMATION
  Report Type: 
  Country: None (occurrence: None)
  Receive Date: 20120105
  Receipt Date: 20110204
  Transmission Date: 20120608
  Serious: No
  Sender: FDA-Public Use
  Company Number: US-ABBOTT-11P-163-0702994-00

PATIENT
  Age: 71 Year
  Sex: Female

DRUGS (5)
  1. SYNTHROID [Suspect]
     Indication: PRODUCT USED FOR UNKNOWN INDICATION
     Route: 048
  2. CLARITIN [Suspect]
     Indication: EYE PRURITUS
  3. HIGH BLOOD PRESSURE MEDICATION [Concomitant]
     Indication: PRODUCT USED FOR UNKNOWN INDICATION
  4. CLARITIN [Suspect]
     Indication: RHINORRHOEA
     Route: 048
     Dates: start: 20101201, end: 20101201
  5. CLARITIN [Suspect]
     Indication: SNEEZING

REACTIONS (6)
  - INSOMNIA [None]
  - HEART RATE IRREGULAR [None]
  - SNEEZING [None]
  - HEART RATE INCREASED [None]
  - RHINORRHOEA [None]
  - EYE PRURITUS [None]
